FAERS Safety Report 17860926 (Version 4)
Quarter: 2020Q3

REPORT INFORMATION
  Report Type: Spontaneous
  Country: US (occurrence: US)
  Receive Date: 20200604
  Receipt Date: 20200813
  Transmission Date: 20201103
  Serious: Yes (Death, Hospitalization, Other)
  Sender: FDA-Public Use
  Company Number: US-INCYTE CORPORATION-2020IN005061

PATIENT

DRUGS (1)
  1. JAKAFI [Suspect]
     Active Substance: RUXOLITINIB
     Indication: POLYCYTHAEMIA VERA
     Dosage: 10 MILLIGRAM, BID
     Route: 048
     Dates: start: 20191213

REACTIONS (9)
  - Asthenia [Unknown]
  - Haemoglobin decreased [Unknown]
  - Death [Fatal]
  - Pneumonia [Unknown]
  - Hip fracture [Unknown]
  - Fall [Unknown]
  - Product dose omission issue [Unknown]
  - Hypotension [Unknown]
  - Cystitis [Unknown]
